FAERS Safety Report 13707522 (Version 1)
Quarter: 2017Q2

REPORT INFORMATION
  Report Type: Spontaneous
  Country: US (occurrence: US)
  Receive Date: 20170630
  Receipt Date: 20170630
  Transmission Date: 20170830
  Serious: No
  Sender: FDA-Public Use
  Company Number: US-BAYER-2017-125985

PATIENT
  Age: 75 Year
  Sex: Female

DRUGS (6)
  1. LENVATINIB [Concomitant]
     Active Substance: LENVATINIB
     Indication: THYROID CANCER
     Dosage: 20 MG, QD
     Route: 048
     Dates: start: 20160607
  2. LENVATINIB [Concomitant]
     Active Substance: LENVATINIB
     Indication: THYROID CANCER
     Dosage: 14 MG, QD
     Route: 048
     Dates: start: 2017
  3. OSTEO BI-FLEX [Concomitant]
     Active Substance: CHONDROITIN SULFATE A\GLUCOSAMINE
  4. ALEVE [Suspect]
     Active Substance: NAPROXEN SODIUM
     Dosage: UNK
  5. TRIAMTERENE AND HYDROCHLOROTHIAZID [Concomitant]
     Active Substance: HYDROCHLOROTHIAZIDE\TRIAMTERENE
  6. LENVATINIB [Concomitant]
     Active Substance: LENVATINIB
     Indication: THYROID CANCER
     Dosage: 24 MG, QD
     Route: 048
     Dates: start: 20160127, end: 20160606

REACTIONS (14)
  - Cough [Unknown]
  - Weight decreased [Unknown]
  - Memory impairment [Unknown]
  - Dysuria [Unknown]
  - Neck pain [Unknown]
  - Pollakiuria [Unknown]
  - Protein urine present [Unknown]
  - Eye pruritus [Unknown]
  - Abdominal pain upper [Unknown]
  - Salivary hypersecretion [Unknown]
  - Feeling abnormal [Unknown]
  - Ocular hyperaemia [Unknown]
  - Speech disorder [Unknown]
  - Palmar-plantar erythrodysaesthesia syndrome [Unknown]

NARRATIVE: CASE EVENT DATE: 2016
